FAERS Safety Report 10654986 (Version 1)
Quarter: 2014Q4

REPORT INFORMATION
  Report Type: Spontaneous
  Country: US (occurrence: US)
  Receive Date: 20141216
  Receipt Date: 20141216
  Transmission Date: 20150529
  Serious: No
  Sender: FDA-Public Use
  Company Number: US-PFIZER INC-2014344584

PATIENT
  Sex: Female

DRUGS (14)
  1. ZOLOFT [Suspect]
     Active Substance: SERTRALINE HYDROCHLORIDE
     Dosage: 50 MG, UNK
     Dates: start: 2003, end: 2003
  2. REQUIP [Suspect]
     Active Substance: ROPINIROLE HYDROCHLORIDE
     Dosage: 12 MG, UNK
     Dates: start: 2002
  3. AMANTADINE [Suspect]
     Active Substance: AMANTADINE
     Dosage: 100 MG, UNK
     Dates: start: 2003, end: 2003
  4. REQUIP [Suspect]
     Active Substance: ROPINIROLE HYDROCHLORIDE
     Dosage: 18 MG, UNK
  5. WELLBUTRIN [Suspect]
     Active Substance: BUPROPION HYDROCHLORIDE
     Dosage: 150 MG, UNK
     Dates: start: 2002
  6. ZOLOFT [Suspect]
     Active Substance: SERTRALINE HYDROCHLORIDE
     Dosage: 25 MG, UNK
     Dates: start: 2002
  7. ZOLOFT [Suspect]
     Active Substance: SERTRALINE HYDROCHLORIDE
     Dosage: 100 MG, UNK
     Dates: start: 2003, end: 2003
  8. NEURONTIN [Suspect]
     Active Substance: GABAPENTIN
     Dosage: 300 MG, UNK
     Dates: start: 2003, end: 2003
  9. REQUIP [Suspect]
     Active Substance: ROPINIROLE HYDROCHLORIDE
     Dosage: 15 MG, UNK
     Dates: start: 2003, end: 2003
  10. CLONAZEPAM. [Suspect]
     Active Substance: CLONAZEPAM
     Dosage: 0.5 MG, UNK
     Dates: start: 2002
  11. REQUIP [Suspect]
     Active Substance: ROPINIROLE HYDROCHLORIDE
     Dosage: 21 MG, UNK
     Dates: start: 2010
  12. COQ10 [Suspect]
     Active Substance: UBIDECARENONE
     Dosage: 1200 MG, UNK
     Dates: start: 2002
  13. SELEGILINE [Suspect]
     Active Substance: SELEGILINE
     Dosage: 5 MG, UNK
     Dates: start: 2003, end: 2010
  14. CYMBALTA [Suspect]
     Active Substance: DULOXETINE HYDROCHLORIDE
     Dosage: UNK
     Dates: start: 2004

REACTIONS (2)
  - Weight increased [Not Recovered/Not Resolved]
  - Fatigue [Recovered/Resolved]
